FAERS Safety Report 5847651-5 (Version None)
Quarter: 2008Q3

REPORT INFORMATION
  Report Type: 
  Country: None (occurrence: None)
  Receive Date: 20080818
  Receipt Date: 20080214
  Transmission Date: 20090109
  Serious: No
  Sender: FDA-Public Use
  Company Number: US-BAYER-200813890NA

PATIENT
  Age: 49 Year
  Sex: Female

DRUGS (1)
  1. LEVLITE [Suspect]
     Indication: ORAL CONTRACEPTION
     Route: 048
     Dates: start: 20000101, end: 20071201

REACTIONS (1)
  - WITHDRAWAL BLEEDING IRREGULAR [None]
